FAERS Safety Report 5531875-0 (Version None)
Quarter: 2007Q4

REPORT INFORMATION
  Report Type: 
  Country: None (occurrence: None)
  Receive Date: 20071119
  Receipt Date: 20070801
  Transmission Date: 20080405
  Serious: No
  Sender: FDA-Public Use
  Company Number: TPA2007A01630

PATIENT
  Age: 5 Decade
  Sex: Male

DRUGS (1)
  1. ROZEREM [Suspect]

REACTIONS (1)
  - HANGOVER [None]
